FAERS Safety Report 24557579 (Version 1)
Quarter: 2024Q4

REPORT INFORMATION
  Report Type: Spontaneous
  Country: US (occurrence: US)
  Receive Date: 20241028
  Receipt Date: 20241028
  Transmission Date: 20250115
  Serious: Yes (Other)
  Sender: NOVARTIS
  Company Number: US-002147023-NVSC2024US206006

PATIENT
  Sex: Female

DRUGS (1)
  1. COSENTYX [Suspect]
     Active Substance: SECUKINUMAB
     Indication: Enteritis
     Dosage: 300 MG, PRN
     Route: 058
     Dates: start: 20240227, end: 20241017

REACTIONS (4)
  - Gastric haemorrhage [Unknown]
  - Anaemia [Unknown]
  - Brain fog [Unknown]
  - Product use in unapproved indication [Unknown]
